FAERS Safety Report 10661466 (Version 1)
Quarter: 2014Q4

REPORT INFORMATION
  Report Type: Spontaneous
  Country: FR (occurrence: None)
  Receive Date: 20141216
  Receipt Date: 20141216
  Transmission Date: 20150529
  Serious: Yes (Hospitalization)
  Sender: FDA-Public Use
  Company Number: NSR_01728_2014

PATIENT
  Sex: Male

DRUGS (1)
  1. BACLOFEN. [Suspect]
     Active Substance: BACLOFEN
     Indication: ALCOHOLISM
     Dates: start: 20131112

REACTIONS (7)
  - Delirium [None]
  - Agitation [None]
  - Anxiety disorder [None]
  - Loss of consciousness [None]
  - Refusal of treatment by patient [None]
  - Confusional state [None]
  - Haematoma [None]
